FAERS Safety Report 19181988 (Version 1)
Quarter: 2021Q2

REPORT INFORMATION
  Report Type: Other
  Country: US (occurrence: US)
  Receive Date: 20210427
  Receipt Date: 20210427
  Transmission Date: 20210717
  Serious: Yes (Other)
  Sender: FDA-Public Use
  Company Number: US-ROCHE-2816269

PATIENT
  Age: 60 Year
  Sex: Female
  Weight: 70.37 kg

DRUGS (7)
  1. OCREVUS [Suspect]
     Active Substance: OCRELIZUMAB
     Route: 042
  2. NALTREXONE [Concomitant]
     Active Substance: NALTREXONE
     Dosage: ONGOING YES
     Route: 048
     Dates: start: 201405
  3. OCREVUS [Suspect]
     Active Substance: OCRELIZUMAB
     Indication: SECONDARY PROGRESSIVE MULTIPLE SCLEROSIS
     Dosage: ONGOING YES
     Route: 042
     Dates: start: 201909
  4. BACLOFEN. [Concomitant]
     Active Substance: BACLOFEN
     Indication: MUSCLE SPASMS
     Dosage: ONGOING YES
     Route: 048
     Dates: start: 201311
  5. CRANBERRY. [Concomitant]
     Active Substance: CRANBERRY
     Indication: URINARY INCONTINENCE
     Dosage: ONGOING YES
     Route: 048
     Dates: start: 202007
  6. FISH OIL [Concomitant]
     Active Substance: FISH OIL
     Dosage: ONGOING YES
     Route: 048
     Dates: start: 20200714
  7. VITAMIN D3 [Concomitant]
     Active Substance: CHOLECALCIFEROL
     Dosage: ONGOING YES?START DATE UNKNOWN
     Route: 048

REACTIONS (2)
  - Breast cancer [Not Recovered/Not Resolved]
  - Hypothyroidism [Not Recovered/Not Resolved]

NARRATIVE: CASE EVENT DATE: 202003
